FAERS Safety Report 6421426-0 (Version None)
Quarter: 2009Q4

REPORT INFORMATION
  Report Type: 
  Country: None (occurrence: None)
  Receive Date: 20091029
  Receipt Date: 20091029
  Transmission Date: 20100525
  Serious: Yes (Disabling)
  Sender: FDA-Public Use
  Company Number: None

PATIENT
  Sex: Female
  Weight: 112.4921 kg

DRUGS (1)
  1. LITHIUM CARBONATE [Suspect]

REACTIONS (3)
  - NAUSEA [None]
  - RASH [None]
  - WEIGHT INCREASED [None]
